FAERS Safety Report 6104201-6 (Version None)
Quarter: 2009Q1

REPORT INFORMATION
  Report Type: 
  Country: None (occurrence: None)
  Receive Date: 20090305
  Receipt Date: 20090220
  Transmission Date: 20090719
  Serious: Yes (Other)
  Sender: FDA-Public Use
  Company Number: PHHY2009GB06738

PATIENT

DRUGS (1)
  1. VOLTAREN [Suspect]
     Dosage: 75 MG
     Route: 042

REACTIONS (2)
  - DRUG ADMINISTRATION ERROR [None]
  - THROMBOSIS [None]
